FAERS Safety Report 7061432-9 (Version None)
Quarter: 2010Q4

REPORT INFORMATION
  Report Type: 
  Country: None (occurrence: None)
  Receive Date: 20101026
  Receipt Date: 20101013
  Transmission Date: 20110411
  Serious: Yes (Other)
  Sender: FDA-Public Use
  Company Number: JP-ASTRAZENECA-2010SE49908

PATIENT
  Age: 20 Year
  Sex: Male

DRUGS (9)
  1. CANDESARTAN CILEXETIL HYDROCHLOROTHIAZIDE [Suspect]
     Dosage: 16 MG/25 MG DAILY
     Route: 048
  2. EXENATIDE [Suspect]
     Route: 065
  3. EXENATIDE [Suspect]
     Route: 065
  4. REPAGLINIDE [Concomitant]
     Route: 065
  5. METFORMIN [Concomitant]
     Route: 065
  6. INSULIN GLARGINE [Concomitant]
     Route: 065
  7. ATORVASTATIN [Concomitant]
     Route: 065
  8. MICRONIZED FENOFIBRATE [Concomitant]
     Route: 065
  9. ACETYLSALICYLIC ACID SRT [Concomitant]
     Route: 065

REACTIONS (10)
  - CONDITION AGGRAVATED [None]
  - DEHYDRATION [None]
  - HYPERTRIGLYCERIDAEMIA [None]
  - ISCHAEMIC NEPHROPATHY [None]
  - NAUSEA [None]
  - NO THERAPEUTIC RESPONSE [None]
  - REFUSAL OF TREATMENT BY PATIENT [None]
  - RENAL FAILURE ACUTE [None]
  - RENAL TUBULAR NECROSIS [None]
  - VOMITING [None]
